FAERS Safety Report 6849252-9 (Version None)
Quarter: 2010Q3

REPORT INFORMATION
  Report Type: 
  Country: None (occurrence: None)
  Receive Date: 20100716
  Receipt Date: 20071008
  Transmission Date: 20110219
  Serious: No
  Sender: FDA-Public Use
  Company Number: US-PFIZER INC-2007081902

PATIENT
  Age: 60 Year
  Sex: Female

DRUGS (2)
  1. CHANTIX [Suspect]
     Dosage: EVERY DAY
     Dates: start: 20070901
  2. ALL OTHER THERAPEUTIC PRODUCTS [Concomitant]
     Indication: HIATUS HERNIA

REACTIONS (8)
  - ABDOMINAL DISTENSION [None]
  - ABDOMINAL PAIN [None]
  - ABNORMAL DREAMS [None]
  - CONSTIPATION [None]
  - FEELING ABNORMAL [None]
  - FLATULENCE [None]
  - GASTROOESOPHAGEAL REFLUX DISEASE [None]
  - HIATUS HERNIA [None]
